FAERS Safety Report 7644728-9 (Version None)
Quarter: 2011Q3

REPORT INFORMATION
  Report Type: 
  Country: None (occurrence: None)
  Receive Date: 20110729
  Receipt Date: 20110721
  Transmission Date: 20111222
  Serious: Yes (Other)
  Sender: FDA-Public Use
  Company Number: PHHY2011IE66695

PATIENT
  Age: 42 Year
  Sex: Female

DRUGS (3)
  1. LABETALOL HCL [Suspect]
     Indication: BLOOD PRESSURE INCREASED
     Dosage: 160 MG, PER HOUR
     Route: 042
  2. METHYLDOPA [Concomitant]
     Dosage: 250 MG, TID
     Route: 048
  3. METHYLDOPA [Concomitant]
     Dosage: 500 MG, TID
     Route: 048

REACTIONS (7)
  - HYPERHIDROSIS [None]
  - MATERNAL EXPOSURE DURING PREGNANCY [None]
  - PROTEINURIA [None]
  - PREMATURE DELIVERY [None]
  - BLOOD PRESSURE INCREASED [None]
  - NAUSEA [None]
  - HYPOGLYCAEMIA [None]
